FAERS Safety Report 12893119 (Version 1)
Quarter: 2016Q4

REPORT INFORMATION
  Report Type: Spontaneous
  Country: CA (occurrence: CA)
  Receive Date: 20161028
  Receipt Date: 20161028
  Transmission Date: 20170207
  Serious: Yes (Hospitalization)
  Sender: FDA-Public Use
  Company Number: CA-ACTELION-A-US2016-144682

PATIENT
  Age: 75 Year
  Sex: Female

DRUGS (10)
  1. HYDROMORPHONE [Concomitant]
     Active Substance: HYDROMORPHONE
  2. TRACLEER [Suspect]
     Active Substance: BOSENTAN
     Indication: PULMONARY HYPERTENSION
     Dosage: 125 MG, BID
     Route: 048
  3. ZAROXOLYN [Concomitant]
     Active Substance: METOLAZONE
  4. SENOKOT [Concomitant]
     Active Substance: SENNOSIDES
  5. WARFARIN [Concomitant]
     Active Substance: WARFARIN
  6. PROCHLORAZINE [Concomitant]
  7. VITAMIN E [Concomitant]
     Active Substance: .ALPHA.-TOCOPHEROL
  8. SPIRONOLACTONE. [Concomitant]
     Active Substance: SPIRONOLACTONE
  9. REVATIO [Concomitant]
     Active Substance: SILDENAFIL CITRATE
  10. RANITIDINE. [Concomitant]
     Active Substance: RANITIDINE

REACTIONS (3)
  - Weight increased [Recovered/Resolved]
  - Gastroenteritis viral [Recovered/Resolved]
  - Dyspnoea [Recovered/Resolved]
